FAERS Safety Report 12727513 (Version 1)
Quarter: 2016Q3

REPORT INFORMATION
  Report Type: Spontaneous
  Country: US (occurrence: US)
  Receive Date: 20160907
  Receipt Date: 20160907
  Transmission Date: 20161109
  Serious: Yes (Life-Threatening, Hospitalization)
  Sender: FDA-Public Use
  Company Number: None

PATIENT
  Age: 83 Year
  Sex: Male
  Weight: 81.8 kg

DRUGS (1)
  1. NAPROXEN. [Suspect]
     Active Substance: NAPROXEN
     Indication: PAIN
     Route: 048
     Dates: end: 20160727

REACTIONS (11)
  - Faeces discoloured [None]
  - Gastric ulcer haemorrhage [None]
  - Haematemesis [None]
  - Gastric haemorrhage [None]
  - Radiation associated pain [None]
  - Asthenia [None]
  - Hiatus hernia [None]
  - Nausea [None]
  - Abdominal pain [None]
  - Epistaxis [None]
  - Haemoglobin decreased [None]

NARRATIVE: CASE EVENT DATE: 20160727
